FAERS Safety Report 23455462 (Version 1)
Quarter: 2024Q1

REPORT INFORMATION
  Report Type: Spontaneous
  Country: ES (occurrence: ES)
  Receive Date: 20240130
  Receipt Date: 20240130
  Transmission Date: 20240410
  Serious: Yes (Death, Other)
  Sender: FDA-Public Use
  Company Number: None

PATIENT
  Age: 64 Year
  Sex: Female
  Weight: 72 kg

DRUGS (4)
  1. ENOXAPARIN SODIUM [Suspect]
     Active Substance: ENOXAPARIN SODIUM
     Indication: Cardiac valve prosthesis user
     Dosage: 60 MG, Q12H
     Route: 058
     Dates: start: 20231021, end: 20231023
  2. ALLOPURINOL [Concomitant]
     Active Substance: ALLOPURINOL
     Dosage: UNK UNK, QD
     Route: 048
     Dates: start: 20201210
  3. SINTROM [Concomitant]
     Active Substance: ACENOCOUMAROL
     Indication: Cardiac valve prosthesis user
     Dosage: DTS 12
     Route: 048
     Dates: start: 20160308, end: 20231018
  4. DOXICICLINA NORMON [Concomitant]
     Dosage: UNK, BID
     Route: 048
     Dates: start: 20160328

REACTIONS (3)
  - Multiple organ dysfunction syndrome [Fatal]
  - Retroperitoneal haematoma [Fatal]
  - Shock haemorrhagic [Fatal]
